FAERS Safety Report 5684606-8 (Version None)
Quarter: 2008Q1

REPORT INFORMATION
  Report Type: 
  Country: None (occurrence: None)
  Receive Date: 20080328
  Receipt Date: 20070509
  Transmission Date: 20080703
  Serious: No
  Sender: FDA-Public Use
  Company Number: US-BRISTOL-MYERS SQUIBB COMPANY-13740618

PATIENT
  Age: 79 Year
  Sex: Male

DRUGS (4)
  1. ERBITUX [Suspect]
     Indication: RECTAL CANCER
     Route: 042
     Dates: start: 20061115, end: 20070411
  2. CPT-11 [Suspect]
     Indication: RECTAL CANCER
  3. ACYCLOVIR [Concomitant]
     Indication: MUCOSAL INFLAMMATION
  4. NYSTATIN [Concomitant]
     Indication: MUCOSAL INFLAMMATION

REACTIONS (1)
  - NASAL DISCOMFORT [None]
